FAERS Safety Report 15036510 (Version 1)
Quarter: 2018Q2

REPORT INFORMATION
  Report Type: Spontaneous
  Country: ZA (occurrence: ZA)
  Receive Date: 20180620
  Receipt Date: 20180620
  Transmission Date: 20180711
  Serious: Yes (Death)
  Sender: FDA-Public Use
  Company Number: ZA-PFIZER INC-2018250111

PATIENT
  Age: 81 Year
  Sex: Female

DRUGS (13)
  1. GLUCOPHAGE XR [Suspect]
     Active Substance: METFORMIN HYDROCHLORIDE
     Dosage: 500 MG, UNK
  2. ADCO-ZOLPIDEM [Suspect]
     Active Substance: ZOLPIDEM TARTRATE
     Dosage: 10 MG, UNK
  3. MIRADEP [Suspect]
     Active Substance: MIRTAZAPINE
     Dosage: 15 MG, UNK
  4. LYRICA [Suspect]
     Active Substance: PREGABALIN
     Dosage: 25 MG, UNK
  5. ZOXADON [Suspect]
     Active Substance: RISPERIDONE
     Dosage: 0.5 MG, UNK
  6. ECOTRIN [Suspect]
     Active Substance: ASPIRIN
     Dosage: 81 MG, UNK
  7. SALAZOPYRIN [Suspect]
     Active Substance: SULFASALAZINE
     Dosage: 500 MG, UNK
  8. PURESIS [Suspect]
     Active Substance: FUROSEMIDE
     Dosage: 40 MG, UNK
  9. RIVOTRIL [Suspect]
     Active Substance: CLONAZEPAM
     Dosage: 0.5 MG, UNK
  10. METHOTREXATE SODIUM. [Suspect]
     Active Substance: METHOTREXATE SODIUM
     Dosage: 2.5 MG, UNK
  11. OMEZ /00661201/ [Suspect]
     Active Substance: OMEPRAZOLE
     Dosage: 20 MG, UNK
  12. COXLEON [Suspect]
     Active Substance: CELECOXIB
     Dosage: 200 MG, UNK
  13. ELTROXIN [Suspect]
     Active Substance: LEVOTHYROXINE
     Dosage: 100 UG, UNK

REACTIONS (1)
  - Death [Fatal]

NARRATIVE: CASE EVENT DATE: 20180609
